FAERS Safety Report 7519253-6 (Version None)
Quarter: 2011Q2

REPORT INFORMATION
  Report Type: 
  Country: None (occurrence: None)
  Receive Date: 20110523
  Receipt Date: 20080728
  Transmission Date: 20111010
  Serious: Yes (Hospitalization, Other)
  Sender: FDA-Public Use
  Company Number: 2008SP015370

PATIENT
  Age: 74 Year
  Sex: Male
  Weight: 58 kg

DRUGS (12)
  1. THEO SLOW [Concomitant]
  2. PREDNISOLONE [Concomitant]
  3. CIMETIDINE HCL [Concomitant]
  4. CISDYNE [Concomitant]
  5. PEG-INTRON [Suspect]
     Indication: HEPATITIS C
     Dosage: 100 MCG;QW;SC ; 50 MCG;QW;SC
     Route: 058
     Dates: start: 20080728, end: 20080819
  6. PEG-INTRON [Suspect]
     Indication: HEPATITIS C
     Dosage: 100 MCG;QW;SC ; 50 MCG;QW;SC
     Route: 058
     Dates: start: 20080331
  7. REBETOL [Suspect]
     Indication: HEPATITIS C
     Dosage: PO
     Route: 048
     Dates: start: 20080331
  8. GLYCLAMIN (AZULENE SULFONATE SODIUM / L-GLUTAMINE) [Concomitant]
  9. KOLANTYL (DICYCLOVERINE /ALUMINUM HYDROXIDE COMBINED DRUG) [Concomitant]
  10. SPIRIVA [Concomitant]
  11. KETOTEN [Concomitant]
  12. ADOAIR (SALMETEROL XINAFOATE / FLUTICASONE PROPIONATE) [Concomitant]

REACTIONS (8)
  - RESTLESSNESS [None]
  - CEREBRAL ATROPHY [None]
  - PYREXIA [None]
  - ASTHMA [None]
  - LUNG INFILTRATION [None]
  - DELIRIUM [None]
  - PNEUMONIA BACTERIAL [None]
  - DEMENTIA ALZHEIMER'S TYPE [None]
